FAERS Safety Report 18938154 (Version 2)
Quarter: 2021Q1

REPORT INFORMATION
  Report Type: Report from Study
  Country: US (occurrence: US)
  Receive Date: 20210224
  Receipt Date: 20210302
  Transmission Date: 20210420
  Serious: Yes (Death, Hospitalization)
  Sender: FDA-Public Use
  Company Number: US-PFIZER INC-2018-04019

PATIENT
  Age: 56 Year
  Sex: Female
  Weight: 73.8 kg

DRUGS (36)
  1. VITAMIN C [Concomitant]
     Active Substance: ASCORBIC ACID
     Indication: SUPPLEMENTATION THERAPY
     Dosage: 1000.00 MG, 3X/DAY
     Route: 048
     Dates: start: 20170718
  2. FLUTICASONE. [Concomitant]
     Active Substance: FLUTICASONE
     Indication: SEASONAL ALLERGY
     Dosage: UNK, 2X/DAY
     Route: 055
     Dates: start: 20180105
  3. TURMERIC [CURCUMA LONGA] [Concomitant]
     Active Substance: HERBALS\TURMERIC
     Indication: SUPPLEMENTATION THERAPY
     Dosage: UNK, 2X/DAY
     Route: 048
     Dates: start: 20170223
  4. CETUXIMAB. [Suspect]
     Active Substance: CETUXIMAB
     Dosage: 478 MG, WEEKLY
     Route: 042
     Dates: start: 20180118, end: 20180118
  5. RESVERATROL [Concomitant]
     Active Substance: DIETARY SUPPLEMENT\RESVERATROL
     Indication: SUPPLEMENTATION THERAPY
     Dosage: UNK, 1X/DAY
     Route: 048
     Dates: start: 20170516
  6. COLACE [Concomitant]
     Active Substance: DOCUSATE SODIUM
     Indication: CONSTIPATION
     Dosage: 100.00 MG, AS NEEDED
     Route: 048
     Dates: start: 20150317
  7. DOXYCYCLINE. [Concomitant]
     Active Substance: DOXYCYCLINE
     Indication: ACNE
  8. MILK THISTLE [SILYBUM MARIANUM] [Concomitant]
     Active Substance: DIETARY SUPPLEMENT\HERBALS\MILK THISTLE
     Indication: SUPPLEMENTATION THERAPY
     Dosage: UNK, 1X/DAY
     Route: 048
     Dates: start: 20170516
  9. ONDANSETRON [Concomitant]
     Active Substance: ONDANSETRON
     Indication: VOMITING
  10. IRINOTECAN HCL [Suspect]
     Active Substance: IRINOTECAN HYDROCHLORIDE
     Indication: COLORECTAL CANCER METASTATIC
     Dosage: 700 MG, BIWEEKLY
     Route: 042
     Dates: start: 20171201, end: 20171228
  11. CETUXIMAB. [Suspect]
     Active Substance: CETUXIMAB
     Dosage: 478 MG, WEEKLY
     Route: 042
     Dates: start: 20171228, end: 20180104
  12. FLUOROURACIL. [Suspect]
     Active Substance: FLUOROURACIL
     Indication: COLORECTAL CANCER METASTATIC
     Dosage: 4584 MG, BIWEEKLY
     Route: 042
     Dates: start: 20171201, end: 20180111
  13. FOLINIC ACID [Suspect]
     Active Substance: LEUCOVORIN
     Indication: COLORECTAL CANCER METASTATIC
     Dosage: 764 MG, BIWEEKLY
     Route: 042
     Dates: start: 20171201, end: 20180111
  14. COMPAZINE [PROCHLORPERAZINE EDISYLATE] [Concomitant]
     Active Substance: PROCHLORPERAZINE EDISYLATE
     Indication: NAUSEA
     Dosage: 10.00 MG, 3X/DAY
     Route: 048
     Dates: start: 20171012
  15. VALTREX [Concomitant]
     Active Substance: VALACYCLOVIR HYDROCHLORIDE
     Indication: MUCOSAL INFLAMMATION
     Dosage: 500.00 MG, 1X/DAY
     Route: 048
     Dates: start: 20170516
  16. ZYRTEC [Concomitant]
     Active Substance: CETIRIZINE HYDROCHLORIDE
     Indication: SEASONAL ALLERGY
     Dosage: UNK, 1X/DAY
     Route: 048
     Dates: start: 20170531
  17. TAGAMET [Concomitant]
     Active Substance: CIMETIDINE
     Indication: GASTROOESOPHAGEAL REFLUX DISEASE
     Dosage: 400.00 MG, 2X/DAY
     Route: 048
     Dates: start: 2018
  18. CETUXIMAB. [Suspect]
     Active Substance: CETUXIMAB
     Indication: COLORECTAL CANCER METASTATIC
     Dosage: 600 MG, WEEKLY
     Route: 042
     Dates: start: 20171214
  19. ATIVAN [Concomitant]
     Active Substance: LORAZEPAM
     Indication: NAUSEA
  20. CURCUMIN [Concomitant]
     Active Substance: CURCUMIN
     Indication: SUPPLEMENTATION THERAPY
     Dosage: 3000.00 MG, 1X/DAY
     Route: 048
     Dates: start: 20170516
  21. ASPIRIN [ACETYLSALICYLIC ACID] [Concomitant]
     Active Substance: ASPIRIN
     Indication: COLON CANCER
     Dosage: 81.00 MG, 1X/DAY
     Route: 048
     Dates: start: 20150213
  22. PROBIOTICS NOS [Concomitant]
     Active Substance: PROBIOTICS NOS
     Indication: SUPPLEMENTATION THERAPY
     Dosage: UNK, 1X/DAY
     Route: 048
     Dates: start: 20170223
  23. MELATONIN [Concomitant]
     Active Substance: MELATONIN
     Indication: SUPPLEMENTATION THERAPY
     Dosage: 20 MG, UNK
     Route: 048
     Dates: start: 20170223
  24. ONDANSETRON [Concomitant]
     Active Substance: ONDANSETRON
     Indication: NAUSEA
     Dosage: 8.00 MG, AS NEEDED
     Route: 048
     Dates: start: 20170421
  25. PROTONIX [OMEPRAZOLE] [Concomitant]
     Active Substance: OMEPRAZOLE
     Indication: GASTROOESOPHAGEAL REFLUX DISEASE
     Dosage: UNK
     Route: 048
     Dates: start: 2018
  26. CALCIUM 500+D [Concomitant]
     Active Substance: CALCIUM\VITAMIN D
     Indication: SUPPLEMENTATION THERAPY
     Dosage: UNK, 2X/DAY
     Route: 048
     Dates: start: 20170718
  27. DOXYCYCLINE. [Concomitant]
     Active Substance: DOXYCYCLINE
     Indication: DRY SKIN
     Dosage: 20 MG, 2X/DAY
     Route: 048
     Dates: start: 201412
  28. DIPHENHYDRAMINE W/LIDOCAINE/NYSTATIN [Concomitant]
     Indication: PRODUCT USED FOR UNKNOWN INDICATION
     Dosage: 15.00 ML, 1X/DAY
     Route: 048
  29. COENZYME Q10 [Concomitant]
     Active Substance: DIETARY SUPPLEMENT\UBIDECARENONE
     Indication: SUPPLEMENTATION THERAPY
     Dosage: 100.00 MG, 1X/DAY
     Route: 048
     Dates: start: 20170718
  30. HYDROCORTISONE/LIDOCAINE [Concomitant]
     Active Substance: HYDROCORTISONE ACETATE\LIDOCAINE HYDROCHLORIDE
     Indication: ANAL FISSURE
     Dosage: UNK
     Route: 061
     Dates: start: 2018
  31. GARLIC [ALLIUM SATIVUM] [Concomitant]
     Active Substance: GARLIC
     Indication: SUPPLEMENTATION THERAPY
     Dosage: UNK
     Route: 048
     Dates: start: 2018
  32. ATIVAN [Concomitant]
     Active Substance: LORAZEPAM
     Indication: ANXIETY
     Dosage: 1 MG, UNK
     Route: 048
     Dates: start: 2018
  33. ALBUTEROL [SALBUTAMOL] [Concomitant]
     Active Substance: ALBUTEROL
     Indication: PRODUCT USED FOR UNKNOWN INDICATION
     Dosage: UNK, AS NEEDED
  34. VITAMIN D3 [Concomitant]
     Active Substance: CHOLECALCIFEROL
     Indication: SUPPLEMENTATION THERAPY
     Dosage: 5000.00 IU, 1X/DAY
     Route: 048
     Dates: start: 20170516
  35. XYZAL [Concomitant]
     Active Substance: LEVOCETIRIZINE DIHYDROCHLORIDE
     Indication: SEASONAL ALLERGY
     Dosage: 5.00 MG, 1X/DAY
     Route: 048
     Dates: start: 20180111
  36. PREDNISONE. [Concomitant]
     Active Substance: PREDNISONE
     Indication: PRODUCT USED FOR UNKNOWN INDICATION
     Dosage: 80.00 MG, 1X/DAY
     Route: 048

REACTIONS (3)
  - Respiratory failure [Fatal]
  - Pneumomediastinum [Not Recovered/Not Resolved]
  - Interstitial lung disease [Not Recovered/Not Resolved]

NARRATIVE: CASE EVENT DATE: 20180123
